FAERS Safety Report 9725649 (Version 1)
Quarter: 2013Q4

REPORT INFORMATION
  Report Type: Spontaneous
  Country: US (occurrence: US)
  Receive Date: 20131203
  Receipt Date: 20131203
  Transmission Date: 20140711
  Serious: Yes (Death)
  Sender: FDA-Public Use
  Company Number: US-ELI_LILLY_AND_COMPANY-US201311008482

PATIENT
  Sex: Male

DRUGS (3)
  1. FORTEO [Suspect]
     Indication: OSTEOPOROSIS
     Route: 065
  2. FORTEO [Suspect]
     Indication: FRACTURE
  3. FORTEO [Suspect]
     Indication: BACK PAIN

REACTIONS (1)
  - Respiratory disorder [Fatal]
